FAERS Safety Report 5171472-2 (Version None)
Quarter: 2006Q4

REPORT INFORMATION
  Report Type: 
  Country: None (occurrence: None)
  Receive Date: 20061213
  Receipt Date: 20060719
  Transmission Date: 20070319
  Serious: Yes (Hospitalization)
  Sender: FDA-Public Use
  Company Number: US-AMGEN-STX187087

PATIENT
  Sex: Female

DRUGS (2)
  1. ENBREL [Suspect]
     Indication: RHEUMATOID ARTHRITIS
     Route: 058
     Dates: start: 20060705
  2. IMURAN [Concomitant]
     Route: 048
     Dates: start: 20040101

REACTIONS (4)
  - ABDOMINAL PAIN [None]
  - HEADACHE [None]
  - PYREXIA [None]
  - SUBCUTANEOUS ABSCESS [None]
